FAERS Safety Report 25526010 (Version 2)
Quarter: 2025Q3

REPORT INFORMATION
  Report Type: Spontaneous
  Country: US (occurrence: US)
  Receive Date: 20250707
  Receipt Date: 20250820
  Transmission Date: 20251020
  Serious: No
  Sender: BAUSCH AND LOMB
  Company Number: US-BAUSCHBL-2025BNL011825

PATIENT
  Age: 85 Year
  Sex: Female

DRUGS (4)
  1. XIIDRA [Suspect]
     Active Substance: LIFITEGRAST
     Indication: Dry eye
     Dosage: SHE WAS ADMINISTERING 2 DROPS INTO EACH EYE TWICE DAILY USING TWO VIALS
     Route: 047
     Dates: start: 20250225, end: 2025
  2. XIIDRA [Suspect]
     Active Substance: LIFITEGRAST
     Dosage: DOCTOR INSTRUCTED TO ADMINISTER ONLY 1 DROP INTO EACH EYE TWICE DAILY USING SAME VIAL.
     Route: 047
     Dates: start: 2025
  3. OCUVITE [Suspect]
     Active Substance: VITAMINS
     Indication: Routine health maintenance
     Dosage: 1 MINIGEL QD
     Route: 065
  4. XDEMVY [Concomitant]
     Active Substance: LOTILANER
     Indication: Product used for unknown indication
     Route: 065

REACTIONS (12)
  - Visual impairment [Unknown]
  - Eyelid disorder [Unknown]
  - Eye pain [Unknown]
  - Lacrimation increased [Unknown]
  - Vision blurred [Unknown]
  - Eye discharge [Unknown]
  - Inappropriate schedule of product administration [Unknown]
  - Multiple use of single-use product [Unknown]
  - Patient dissatisfaction with treatment [Unknown]
  - Product communication issue [Unknown]
  - Product knowledge deficit [Unknown]
  - Circumstance or information capable of leading to medication error [Unknown]

NARRATIVE: CASE EVENT DATE: 20250101
